FAERS Safety Report 19749273 (Version 1)
Quarter: 2021Q3

REPORT INFORMATION
  Report Type: Other
  Country: CN (occurrence: CN)
  Receive Date: 20210826
  Receipt Date: 20210826
  Transmission Date: 20211014
  Serious: Yes (Other)
  Sender: FDA-Public Use
  Company Number: CN-ROCHE-2424915

PATIENT

DRUGS (4)
  1. CAMRELIZUMAB [Suspect]
     Active Substance: CAMRELIZUMAB
     Indication: GASTRIC CANCER
     Dosage: OVER 30 MINUTES
     Route: 042
  2. APATINIB MESYLATE [Suspect]
     Active Substance: APATINIB
     Indication: GASTRIC CANCER
     Dosage: ORALLY ON DAYS 1?21 OF EACH 3?WEEK CYCLE.
     Route: 048
  3. CAPECITABINE. [Suspect]
     Active Substance: CAPECITABINE
     Indication: GASTRIC CANCER
     Dosage: DAY 1 TO 14, FOLLOWED BY 7 DAYS OFF
     Route: 048
  4. OXALIPLATIN. [Suspect]
     Active Substance: OXALIPLATIN
     Indication: GASTRIC CANCER
     Dosage: DAY 1 OF EVERY 3 WEEKS FOR 4 TO 6 CYCLES
     Route: 042

REACTIONS (24)
  - Gamma-glutamyltransferase increased [Unknown]
  - Rash [Unknown]
  - Hepatic function abnormal [Unknown]
  - Pneumonitis [Unknown]
  - Blood creatine phosphokinase increased [Unknown]
  - Decreased appetite [Unknown]
  - Rash maculo-papular [Unknown]
  - Alanine aminotransferase increased [Unknown]
  - Blood bilirubin increased [Unknown]
  - Interstitial lung disease [Unknown]
  - Hypophosphataemia [Unknown]
  - Neutrophil count decreased [Unknown]
  - Aspartate aminotransferase increased [Unknown]
  - Uveitis [Unknown]
  - Diarrhoea [Unknown]
  - Platelet count decreased [Unknown]
  - White blood cell count decreased [Unknown]
  - Myocardial infarction [Unknown]
  - Colitis [Unknown]
  - Neutropenia [Unknown]
  - Drug-induced liver injury [Unknown]
  - Blood alkaline phosphatase increased [Unknown]
  - Blood lactate dehydrogenase increased [Unknown]
  - Immune-mediated hepatitis [Unknown]
